FAERS Safety Report 8551405-9 (Version None)
Quarter: 2012Q3

REPORT INFORMATION
  Report Type: 
  Country: None (occurrence: None)
  Receive Date: 20120730
  Receipt Date: 20120307
  Transmission Date: 20120928
  Serious: No
  Sender: FDA-Public Use
  Company Number: US-ALLERGAN-1202106US

PATIENT
  Age: 53 Year
  Sex: Female

DRUGS (2)
  1. LATISSE [Suspect]
     Indication: HYPOTRICHOSIS
     Dosage: 2 GTT, QHS
     Route: 061
     Dates: start: 20111201
  2. LATISSE [Suspect]
     Dosage: 2 GTT, QHS
     Route: 061
     Dates: start: 20110101

REACTIONS (9)
  - WRONG TECHNIQUE IN DRUG USAGE PROCESS [None]
  - SKIN FISSURES [None]
  - DISCOMFORT [None]
  - EYE SWELLING [None]
  - EYELID OEDEMA [None]
  - EYE PRURITUS [None]
  - EYELID EXFOLIATION [None]
  - SKIN DISCOLOURATION [None]
  - EYELIDS PRURITUS [None]
